FAERS Safety Report 7001997-6 (Version None)
Quarter: 2010Q3

REPORT INFORMATION
  Report Type: 
  Country: None (occurrence: None)
  Receive Date: 20100920
  Receipt Date: 20100913
  Transmission Date: 20110219
  Serious: Yes (Life-Threatening)
  Sender: FDA-Public Use
  Company Number: B0638859A

PATIENT
  Sex: Female
  Weight: 55.1 kg

DRUGS (4)
  1. LAPATINIB [Suspect]
     Indication: BREAST CANCER
     Route: 048
     Dates: start: 20100301
  2. DOCETAXEL [Suspect]
     Indication: BREAST CANCER
     Route: 042
  3. CIPRO [Concomitant]
     Dosage: 500MG TWICE PER DAY
     Route: 048
     Dates: start: 20100305
  4. DOLO-NEUROBION [Concomitant]
     Dosage: 500MG THREE TIMES PER DAY
     Route: 048
     Dates: start: 20100305, end: 20100306

REACTIONS (2)
  - NEUTROPENIA [None]
  - VOMITING [None]
